FAERS Safety Report 13555025 (Version 1)
Quarter: 2017Q2

REPORT INFORMATION
  Report Type: Spontaneous
  Country: DE (occurrence: DE)
  Receive Date: 20170517
  Receipt Date: 20170517
  Transmission Date: 20170830
  Serious: Yes (Other)
  Sender: FDA-Public Use
  Company Number: DE-MYLANLABS-2017M1029262

PATIENT

DRUGS (1)
  1. BUPROPION. [Suspect]
     Active Substance: BUPROPION
     Indication: PRODUCT USED FOR UNKNOWN INDICATION
     Route: 048

REACTIONS (7)
  - Generalised tonic-clonic seizure [Recovered/Resolved]
  - Toxicity to various agents [Recovering/Resolving]
  - Suicide attempt [Unknown]
  - Encephalopathy [Not Recovered/Not Resolved]
  - Myoclonic epilepsy [Recovered/Resolved]
  - Coma [Recovered/Resolved]
  - Tonic convulsion [Recovered/Resolved]
